FAERS Safety Report 16198453 (Version 1)
Quarter: 2019Q2

REPORT INFORMATION
  Report Type: Spontaneous
  Country: US (occurrence: US)
  Receive Date: 20190415
  Receipt Date: 20190415
  Transmission Date: 20190711
  Serious: No
  Sender: FDA-Public Use
  Company Number: US-LANNETT COMPANY, INC.-US-2018LAN004625

PATIENT
  Age: 49 Year
  Sex: Female

DRUGS (1)
  1. DICYCLOMINE HYDROCHLORIDE (20MG) [Suspect]
     Active Substance: DICYCLOMINE HYDROCHLORIDE
     Indication: PRODUCT USED FOR UNKNOWN INDICATION
     Dosage: 20 MG Q6H (EVERY 6 HOURS) (TOTAL 3 DOSES)
     Route: 048
     Dates: start: 20181210, end: 20181211

REACTIONS (2)
  - Nausea [Unknown]
  - Diarrhoea [Unknown]

NARRATIVE: CASE EVENT DATE: 201812
